FAERS Safety Report 7357316-9 (Version None)
Quarter: 2011Q1

REPORT INFORMATION
  Report Type: 
  Country: None (occurrence: None)
  Receive Date: 20110308
  Receipt Date: 20110223
  Transmission Date: 20110831
  Serious: Yes (Hospitalization, Other)
  Sender: FDA-Public Use
  Company Number: 834732

PATIENT
  Age: 69 Year
  Sex: Female
  Weight: 77.9 kg

DRUGS (5)
  1. METHOTREXATE [Suspect]
     Dosage: 5000 MG, X 1; INTRAVENOUS DRIP
     Route: 041
     Dates: start: 20110209, end: 20110209
  2. EMEND [Concomitant]
  3. ONDANSETRON [Concomitant]
  4. RITUXAN [Concomitant]
  5. DEXAMETHASONE [Concomitant]

REACTIONS (2)
  - URINE ANALYSIS ABNORMAL [None]
  - HYPOTENSION [None]
